FAERS Safety Report 5750374-4 (Version None)
Quarter: 2008Q2

REPORT INFORMATION
  Report Type: 
  Country: None (occurrence: None)
  Receive Date: 20080523
  Receipt Date: 20080523
  Transmission Date: 20081010
  Serious: Yes (Hospitalization, Other)
  Sender: FDA-Public Use
  Company Number: None

PATIENT
  Age: 49 Year
  Sex: Female
  Weight: 49.8957 kg

DRUGS (4)
  1. ULTRAM [Suspect]
     Indication: NECK PAIN
     Dosage: 50 MG. 8 TIMES DAILY PO
     Route: 048
     Dates: start: 20020801, end: 20071001
  2. ULTRAM [Suspect]
     Indication: PAIN IN EXTREMITY
     Dosage: 50 MG. 8 TIMES DAILY PO
     Route: 048
     Dates: start: 20020801, end: 20071001
  3. LEXAPRO [Suspect]
     Indication: ANXIETY
     Dosage: 10 MG OF LEXAPRO 4 TIMES DAILY PO
     Route: 048
     Dates: start: 20070101, end: 20070530
  4. CYMBALTA [Suspect]
     Dosage: 30-60 OF CYM

REACTIONS (14)
  - AKATHISIA [None]
  - DEHYDRATION [None]
  - DIARRHOEA [None]
  - FAECES DISCOLOURED [None]
  - GASTRIC ULCER [None]
  - IMPAIRED DRIVING ABILITY [None]
  - IMPAIRED WORK ABILITY [None]
  - MENOPAUSE [None]
  - PHARMACEUTICAL PRODUCT COMPLAINT [None]
  - POLYP [None]
  - RIB FRACTURE [None]
  - TREMOR [None]
  - VERTIGO [None]
  - WEIGHT DECREASED [None]
